FAERS Safety Report 18100936 (Version 1)
Quarter: 2020Q3

REPORT INFORMATION
  Report Type: Spontaneous
  Country: NL (occurrence: NL)
  Receive Date: 20200801
  Receipt Date: 20200801
  Transmission Date: 20201103
  Serious: Yes (Other)
  Sender: FDA-Public Use
  Company Number: NL-TEVA-2020-NL-1807230

PATIENT
  Age: 71 Year
  Sex: Female
  Weight: 84 kg

DRUGS (4)
  1. LOSARTAN. [Concomitant]
     Active Substance: LOSARTAN
     Dosage: 100 MILLIGRAM DAILY; 1X 100 MG LOSARTAN,100 MG  THERAPY START DATE AND THERAPY END DATE : ASKED BUT
  2. INSULINE [Concomitant]
     Active Substance: INSULIN NOS
     Dosage: THERAPY START DATE AND THERAPY END DATE : ASKED BUT UNKNOWN
  3. METFORMINE [Concomitant]
     Active Substance: METFORMIN HYDROCHLORIDE
     Dosage: 2 DOSAGE FORMS DAILY; ?2X DAILY METFORMIN, THERAPY START DATE AND THERAPY END DATE : ASKED BUT UNKNO
  4. INDAPAMIDE. [Suspect]
     Active Substance: INDAPAMIDE
     Indication: HYPERTENSION
     Dosage: 1 DOSAGE FORMS DAILY; ?1XPER DAY,  THERAPY END DATE : ASKED BUT UNKNOWN
     Dates: start: 1990

REACTIONS (1)
  - Skin cancer [Not Recovered/Not Resolved]

NARRATIVE: CASE EVENT DATE: 20200709
